FAERS Safety Report 4334591-6 (Version None)
Quarter: 2004Q2

REPORT INFORMATION
  Report Type: 
  Country: None (occurrence: None)
  Receive Date: 20040407
  Receipt Date: 20040213
  Transmission Date: 20050107
  Serious: Yes (Hospitalization)
  Sender: FDA-Public Use
  Company Number: US-BRISTOL-MYERS SQUIBB COMPANY-12508073

PATIENT
  Age: 58 Year
  Sex: Female

DRUGS (15)
  1. CETUXIMAB [Suspect]
     Indication: COLORECTAL CANCER
     Dosage: PT. REC'D 14 COURSES
     Route: 042
     Dates: start: 20030923
  2. FLUOROURACIL [Suspect]
     Indication: COLORECTAL CANCER
     Dosage: PT. REC'D 14 COURSES
     Route: 042
     Dates: start: 20030923
  3. LEUCOVORIN CALCIUM [Suspect]
     Indication: COLORECTAL CANCER
  4. OXALIPLATIN [Suspect]
     Indication: COLORECTAL CANCER
     Dosage: PT. REC'D 14 COURSES
     Route: 042
     Dates: start: 20030923
  5. CAPTOPRIL [Concomitant]
     Dates: start: 20030318
  6. GLUCOTROL [Concomitant]
     Dates: start: 20030318
  7. CELEBREX [Concomitant]
     Dates: start: 20030529
  8. PERCOCET [Concomitant]
     Dates: start: 20030421
  9. FLONASE [Concomitant]
     Dates: start: 20030421
  10. ATIVAN [Concomitant]
     Dates: start: 20030923
  11. ALOXI [Concomitant]
     Dates: start: 20031013
  12. EFFEXOR [Concomitant]
     Dates: start: 20031006
  13. ANZEMET [Concomitant]
     Dates: start: 20030324
  14. FERROUS SULFATE TAB [Concomitant]
     Dates: start: 20030318
  15. CLOTRIMAZOLE [Concomitant]
     Dates: start: 20030529

REACTIONS (14)
  - BLOOD CREATINE PHOSPHOKINASE INCREASED [None]
  - BLOOD CREATINE PHOSPHOKINASE MB INCREASED [None]
  - BLOOD GLUCOSE INCREASED [None]
  - BLOOD PRESSURE DECREASED [None]
  - CARDIAC DISORDER [None]
  - CHEST PAIN [None]
  - DILATATION ATRIAL [None]
  - DYSPNOEA [None]
  - HYPERHIDROSIS [None]
  - MITRAL VALVE INCOMPETENCE [None]
  - NAUSEA [None]
  - TRICUSPID VALVE INCOMPETENCE [None]
  - TROPONIN INCREASED [None]
  - VENTRICULAR HYPERTROPHY [None]
